FAERS Safety Report 7825694-X (Version None)
Quarter: 2011Q4

REPORT INFORMATION
  Report Type: 
  Country: None (occurrence: None)
  Receive Date: 20111017
  Receipt Date: 20110928
  Transmission Date: 20120403
  Serious: Yes (Hospitalization)
  Sender: FDA-Public Use
  Company Number: 2011PROUSA00432

PATIENT
  Age: 63 Year
  Sex: Male
  Weight: 90.7 kg

DRUGS (1)
  1. PROVENGE [Suspect]
     Indication: PROSTATE CANCER METASTATIC
     Dosage: 250 ML, SINGLE, INTRAVENOUS

REACTIONS (8)
  - HYPOTENSION [None]
  - INFUSION RELATED REACTION [None]
  - ASTHENIA [None]
  - SYNCOPE [None]
  - DIZZINESS [None]
  - BLOOD PRESSURE DECREASED [None]
  - PRESYNCOPE [None]
  - HYPERSENSITIVITY [None]
